FAERS Safety Report 24098266 (Version 4)
Quarter: 2025Q2

REPORT INFORMATION
  Report Type: Report from Study
  Country: JP (occurrence: JP)
  Receive Date: 20240716
  Receipt Date: 20250603
  Transmission Date: 20250716
  Serious: Yes (Hospitalization)
  Sender: EISAI
  Company Number: JP-Eisai-202401543_LEQ_P_1

PATIENT
  Age: 88 Year
  Sex: Female
  Weight: 41 kg

DRUGS (9)
  1. LEQEMBI [Suspect]
     Active Substance: LECANEMAB-IRMB
     Indication: Cognitive disorder
     Dates: start: 20240509, end: 20240509
  2. AROMASIN [Concomitant]
     Active Substance: EXEMESTANE
     Indication: Cognitive disorder
  3. AMLODIPINE BESYLATE [Concomitant]
     Active Substance: AMLODIPINE BESYLATE
     Indication: Cognitive disorder
  4. LANSOPRAZOLE [Concomitant]
     Active Substance: LANSOPRAZOLE
  5. OPALMON [Concomitant]
     Active Substance: LIMAPROST
  6. MIROGABALIN BESYLATE [Concomitant]
     Active Substance: MIROGABALIN BESYLATE
  7. CALONAL [Concomitant]
     Active Substance: ACETAMINOPHEN
  8. ELOBIXIBAT [Concomitant]
     Active Substance: ELOBIXIBAT
  9. CELECOXIB [Concomitant]
     Active Substance: CELECOXIB

REACTIONS (4)
  - Infusion related reaction [Recovering/Resolving]
  - Bradycardia [Recovering/Resolving]
  - Hypoaesthesia [Recovering/Resolving]
  - Paraesthesia [Recovering/Resolving]

NARRATIVE: CASE EVENT DATE: 20240509
